FAERS Safety Report 13861782 (Version 2)
Quarter: 2017Q4

REPORT INFORMATION
  Report Type: Report from Study
  Country: None (occurrence: US)
  Receive Date: 20170811
  Receipt Date: 20171004
  Transmission Date: 20180320
  Serious: Yes (Death, Hospitalization)
  Sender: FDA-Public Use
  Company Number: US-VIFOR (INTERNATIONAL) INC.-VIT-2017-02677

PATIENT
  Age: 79 Year
  Sex: Male
  Weight: 93.07 kg

DRUGS (1)
  1. VELTASSA [Suspect]
     Active Substance: PATIROMER
     Indication: HYPERKALAEMIA
     Route: 048
     Dates: start: 20170302, end: 20170320

REACTIONS (3)
  - Irritable bowel syndrome [Recovered/Resolved]
  - Bowel movement irregularity [Recovered/Resolved]
  - Dyspnoea [Fatal]

NARRATIVE: CASE EVENT DATE: 201703
